FAERS Safety Report 4814983-9 (Version None)
Quarter: 2005Q4

REPORT INFORMATION
  Report Type: 
  Country: None (occurrence: None)
  Receive Date: 20051028
  Receipt Date: 20051020
  Transmission Date: 20060501
  Serious: Yes (Other)
  Sender: FDA-Public Use
  Company Number: BR-JNJFOC-20051005008

PATIENT
  Sex: Male

DRUGS (3)
  1. HALDOL [Suspect]
     Indication: DRUG USE FOR UNKNOWN INDICATION
     Dosage: (7 DOSES=7 TABLETS) TAKEN AT ONE TIME
  2. COCAINE [Suspect]
     Indication: DRUG USE FOR UNKNOWN INDICATION
  3. BIPERIDEN HYDROCHLORIDE TAB [Concomitant]

REACTIONS (4)
  - BLOOD PRESSURE INCREASED [None]
  - MUSCLE RIGIDITY [None]
  - SOPOR [None]
  - SUICIDE ATTEMPT [None]
